FAERS Safety Report 14681591 (Version 1)
Quarter: 2018Q1

REPORT INFORMATION
  Report Type: Spontaneous
  Country: CA (occurrence: CA)
  Receive Date: 20180326
  Receipt Date: 20180326
  Transmission Date: 20180509
  Serious: Yes (Hospitalization)
  Sender: FDA-Public Use
  Company Number: CA-PFIZER INC-2018006355

PATIENT
  Age: 55 Year
  Sex: Female

DRUGS (3)
  1. PLAQUENIL [Suspect]
     Active Substance: HYDROXYCHLOROQUINE SULFATE
     Indication: RHEUMATOID ARTHRITIS
     Dosage: UNK
  2. SULFASALAZINE. [Suspect]
     Active Substance: SULFASALAZINE
     Indication: RHEUMATOID ARTHRITIS
     Dosage: UNK
  3. NAPROXEN /00256202/ [Concomitant]
     Active Substance: NAPROXEN SODIUM
     Dosage: 500 MG, UNK

REACTIONS (2)
  - Lung disorder [Unknown]
  - Drug ineffective [Not Recovered/Not Resolved]
